FAERS Safety Report 8587207-7 (Version None)
Quarter: 2012Q3

REPORT INFORMATION
  Report Type: 
  Country: None (occurrence: None)
  Receive Date: 20120810
  Receipt Date: 20111117
  Transmission Date: 20120928
  Serious: No
  Sender: FDA-Public Use
  Company Number: US-ASTRAZENECA-2011SE33755

PATIENT
  Age: 55 Year
  Sex: Female

DRUGS (2)
  1. ARIMIDEX [Suspect]
     Route: 048
  2. COUMADIN [Concomitant]

REACTIONS (4)
  - THERAPY CESSATION [None]
  - CHEST DISCOMFORT [None]
  - INCREASED APPETITE [None]
  - WEIGHT INCREASED [None]
